FAERS Safety Report 13620774 (Version 2)
Quarter: 2017Q2

REPORT INFORMATION
  Report Type: Spontaneous
  Country: BR (occurrence: BR)
  Receive Date: 20170607
  Receipt Date: 20170607
  Transmission Date: 20170830
  Serious: Yes (Death, Life-Threatening, Other)
  Sender: FDA-Public Use
  Company Number: PHHY2017BR079994

PATIENT
  Age: 62 Year
  Sex: Male

DRUGS (2)
  1. ELTROMBOPAG [Suspect]
     Active Substance: ELTROMBOPAG
     Dosage: 50 MG, QD
     Route: 065
     Dates: start: 201401, end: 201507
  2. ELTROMBOPAG [Suspect]
     Active Substance: ELTROMBOPAG
     Indication: APLASTIC ANAEMIA
     Dosage: UNK (INCREASE 25 MG EVERY 15 DAYS UP TO 150 MG/DAY )
     Route: 065
     Dates: start: 201303

REACTIONS (8)
  - Dysplasia [Unknown]
  - Blast cell count increased [Unknown]
  - Platelet count decreased [Unknown]
  - Neutrophil count decreased [Unknown]
  - Haemoglobin decreased [Unknown]
  - Clonal evolution [Unknown]
  - Death [Fatal]
  - Myeloblast percentage decreased [Unknown]

NARRATIVE: CASE EVENT DATE: 201506
